FAERS Safety Report 6050154-9 (Version None)
Quarter: 2009Q1

REPORT INFORMATION
  Report Type: 
  Country: None (occurrence: None)
  Receive Date: 20090122
  Receipt Date: 20090122
  Transmission Date: 20090719
  Serious: Yes (Other)
  Sender: FDA-Public Use
  Company Number: None

PATIENT
  Age: 2 Year
  Sex: Female
  Weight: 13.1543 kg

DRUGS (2)
  1. ORAPRED ODT [Suspect]
     Indication: ASTHMA
     Dosage: 30MG ONCE; PO; 15MG ONCE PO
     Route: 048
     Dates: start: 20090119
  2. ORAPRED ODT [Suspect]
     Indication: ASTHMA
     Dosage: 30MG ONCE; PO; 15MG ONCE PO
     Route: 048
     Dates: start: 20090120

REACTIONS (7)
  - BRUXISM [None]
  - DROOLING [None]
  - DYSARTHRIA [None]
  - PARANOIA [None]
  - PSYCHOMOTOR HYPERACTIVITY [None]
  - RETCHING [None]
  - SLEEP TERROR [None]
